FAERS Safety Report 9200819 (Version 1)
Quarter: 2013Q2

REPORT INFORMATION
  Report Type: Spontaneous
  Country: US (occurrence: US)
  Receive Date: 20130401
  Receipt Date: 20130401
  Transmission Date: 20140414
  Serious: No
  Sender: FDA-Public Use
  Company Number: US-009507513-1303USA013115

PATIENT
  Sex: 0

DRUGS (1)
  1. IMPLANON [Suspect]
     Dosage: 1 ROD
     Route: 059

REACTIONS (3)
  - Device difficult to use [Unknown]
  - Needle issue [Unknown]
  - No adverse event [Unknown]
